FAERS Safety Report 10760787 (Version 1)
Quarter: 2015Q1

REPORT INFORMATION
  Report Type: Spontaneous
  Country: US (occurrence: None)
  Receive Date: 20150202
  Receipt Date: 20150202
  Transmission Date: 20150721
  Serious: Yes (Hospitalization, Other)
  Sender: FDA-Public Use
  Company Number: 1545945

PATIENT
  Age: 50 Year
  Sex: Female

DRUGS (2)
  1. PHENYTOIN 150MG [Concomitant]
  2. PHENYTOIN SODIUM. [Suspect]
     Active Substance: PHENYTOIN SODIUM
     Indication: SEIZURE
     Route: 048

REACTIONS (11)
  - Toxicity to various agents [None]
  - Sinus arrest [None]
  - Dyspnoea [None]
  - Brain natriuretic peptide increased [None]
  - Cardiac arrest [None]
  - Nodal arrhythmia [None]
  - Bradycardia [None]
  - Unresponsive to stimuli [None]
  - Cough [None]
  - Anticonvulsant drug level increased [None]
  - Hypotension [None]
